FAERS Safety Report 5165148-5 (Version None)
Quarter: 2006Q4

REPORT INFORMATION
  Report Type: 
  Country: None (occurrence: None)
  Receive Date: 20061124
  Receipt Date: 20061113
  Transmission Date: 20070319
  Serious: Yes (Other)
  Sender: FDA-Public Use
  Company Number: 2006-02959

PATIENT
  Age: 70 Year
  Sex: Male

DRUGS (3)
  1. VELCADE [Suspect]
     Indication: MULTIPLE MYELOMA
     Dosage: INTRAVENOUS
     Route: 042
     Dates: start: 20060901
  2. DURAGESIC-100 [Concomitant]
  3. ACTIQ (SUGAR-FREE) [Concomitant]

REACTIONS (3)
  - PAIN IN EXTREMITY [None]
  - SENSORY LOSS [None]
  - TACHYCARDIA [None]
